FAERS Safety Report 7335902-X (Version None)
Quarter: 2011Q1

REPORT INFORMATION
  Report Type: 
  Country: None (occurrence: None)
  Receive Date: 20110307
  Receipt Date: 20110301
  Transmission Date: 20110831
  Serious: No
  Sender: FDA-Public Use
  Company Number: US-B.I. PHARMACEUTICALS,INC./RIDGEFIELD-2011-BP-05755BP

PATIENT
  Sex: Female

DRUGS (5)
  1. TRAVATAN [Concomitant]
     Indication: GLAUCOMA
  2. PRADAXA [Suspect]
     Indication: ANTICOAGULANT THERAPY
     Dosage: 300 MG
     Route: 048
     Dates: start: 20110226
  3. CARVEDILOL [Concomitant]
     Indication: HEART RATE IRREGULAR
  4. DILTIAZEM [Concomitant]
     Indication: HEART RATE IRREGULAR
  5. NITROGLYCERIN [Concomitant]
     Indication: ANGINA PECTORIS

REACTIONS (1)
  - CHEST PAIN [None]
